FAERS Safety Report 8822603 (Version 2)
Quarter: 2012Q4

REPORT INFORMATION
  Report Type: Report from Study
  Country: US (occurrence: US)
  Receive Date: 20121003
  Receipt Date: 20121016
  Transmission Date: 20130627
  Serious: Yes (Other)
  Sender: FDA-Public Use
  Company Number: US-ACTELION-A-US2012-72134

PATIENT
  Age: 73 Year
  Sex: Female

DRUGS (4)
  1. TRACLEER [Suspect]
     Indication: PULMONARY ARTERIAL HYPERTENSION
     Dosage: UNK
     Route: 048
  2. COUMADIN [Concomitant]
  3. ZOLOFT [Concomitant]
  4. LASIX [Concomitant]

REACTIONS (3)
  - Spinal compression fracture [Unknown]
  - Swelling [Unknown]
  - Abdominal distension [Unknown]
